FAERS Safety Report 4647187-3 (Version None)
Quarter: 2005Q2

REPORT INFORMATION
  Report Type: 
  Country: None (occurrence: None)
  Receive Date: 20050426
  Receipt Date: 20050330
  Transmission Date: 20051028
  Serious: Yes (Life-Threatening, Other)
  Sender: FDA-Public Use
  Company Number: 2005059656

PATIENT
  Age: 52 Year
  Sex: Female
  Weight: 104.3273 kg

DRUGS (1)
  1. BEXTRA [Suspect]
     Indication: SINUS OPERATION
     Dates: start: 20031222

REACTIONS (7)
  - DYSPNOEA [None]
  - IMPAIRED WORK ABILITY [None]
  - PHARYNGEAL OEDEMA [None]
  - SIMILAR REACTION ON PREVIOUS EXPOSURE TO DRUG [None]
  - SPEECH DISORDER [None]
  - STEVENS-JOHNSON SYNDROME [None]
  - SWOLLEN TONGUE [None]
